FAERS Safety Report 9493236 (Version 1)
Quarter: 2013Q3

REPORT INFORMATION
  Report Type: Report from Study
  Country: BR (occurrence: BR)
  Receive Date: 20130902
  Receipt Date: 20130902
  Transmission Date: 20140515
  Serious: Yes (Other)
  Sender: FDA-Public Use
  Company Number: PHHY2013BR094595

PATIENT
  Sex: Male
  Weight: 103 kg

DRUGS (4)
  1. SANDOSTATIN LAR [Suspect]
     Indication: NEUROENDOCRINE TUMOUR
     Dosage: 1 DF, QMO
     Dates: end: 2012
  2. SANDOSTATIN LAR [Suspect]
     Dosage: 1 DF, QMO
     Dates: start: 2012
  3. ALPRAZOLAM [Concomitant]
     Dosage: UNK UKN, UNK
  4. AMLODIPINE BESYLATE [Concomitant]
     Dosage: UNK UKN, UNK

REACTIONS (3)
  - Impaired healing [Unknown]
  - Intestinal perforation [Unknown]
  - Device intolerance [Unknown]
